FAERS Safety Report 14600493 (Version 1)
Quarter: 2018Q1

REPORT INFORMATION
  Report Type: Spontaneous
  Country: SE (occurrence: SE)
  Receive Date: 20180305
  Receipt Date: 20180305
  Transmission Date: 20180509
  Serious: Yes (Other)
  Sender: FDA-Public Use
  Company Number: SE-GLAXOSMITHKLINE-SE2018032089

PATIENT
  Age: 40 Year
  Sex: Female
  Weight: 78 kg

DRUGS (1)
  1. SCOPODERM/TRANSDERM-SCOP [Suspect]
     Active Substance: SCOPOLAMINE HYDROBROMIDE
     Indication: MOTION SICKNESS
     Dosage: UNK
     Route: 065
     Dates: start: 201711

REACTIONS (3)
  - Vision blurred [Recovered/Resolved]
  - Application site pruritus [Recovered/Resolved]
  - Productive cough [Recovered/Resolved]

NARRATIVE: CASE EVENT DATE: 20171113
